FAERS Safety Report 21331446 (Version 2)
Quarter: 2022Q4

REPORT INFORMATION
  Report Type: Report from Study
  Country: US (occurrence: US)
  Receive Date: 20220914
  Receipt Date: 20221012
  Transmission Date: 20230112
  Serious: Yes (Hospitalization, Other)
  Sender: FDA-Public Use
  Company Number: US-BRISTOL-MYERS SQUIBB COMPANY-2022-102654

PATIENT
  Age: 69 Year
  Sex: Male
  Weight: 88.0 kg

DRUGS (3)
  1. POMALYST [Suspect]
     Active Substance: POMALIDOMIDE
     Indication: Plasma cell myeloma
     Dosage: DAILY 21 DAYS THEN 7 DAYS OFF, C2520B (31-JAN-2026)
     Route: 048
     Dates: start: 20220329
  2. AMIODARONE [Suspect]
     Active Substance: AMIODARONE
     Indication: Cardiac ablation
     Route: 065
  3. DEXAMETHASONE [Concomitant]
     Active Substance: DEXAMETHASONE
     Route: 065

REACTIONS (6)
  - Muscular weakness [Recovering/Resolving]
  - Atrial fibrillation [Unknown]
  - Thyroid disorder [Unknown]
  - Tremor [Recovering/Resolving]
  - Feeling abnormal [Recovering/Resolving]
  - Oedema peripheral [Unknown]

NARRATIVE: CASE EVENT DATE: 20220401
